FAERS Safety Report 10866118 (Version 1)
Quarter: 2015Q1

REPORT INFORMATION
  Report Type: Spontaneous
  Country: US (occurrence: None)
  Receive Date: 20150219
  Receipt Date: 20150219
  Transmission Date: 20150721
  Serious: Yes (Life-Threatening, Hospitalization)
  Sender: FDA-Public Use
  Company Number: None

PATIENT
  Age: 15 Year
  Sex: Female
  Weight: 100 kg

DRUGS (3)
  1. CEFDINIR. [Suspect]
     Active Substance: CEFDINIR
     Indication: OROPHARYNGEAL PAIN
     Route: 048
     Dates: start: 20150101, end: 20150112
  2. CEFDINIR. [Suspect]
     Active Substance: CEFDINIR
     Indication: PYREXIA
     Route: 048
     Dates: start: 20150101, end: 20150112
  3. CEFDINIR. [Suspect]
     Active Substance: CEFDINIR
     Indication: ORAL PUSTULE
     Route: 048
     Dates: start: 20150101, end: 20150112

REACTIONS (6)
  - Rash [None]
  - Swelling [None]
  - Vomiting [None]
  - Chest pain [None]
  - Pyrexia [None]
  - Arrhythmia [None]

NARRATIVE: CASE EVENT DATE: 20150112
